FAERS Safety Report 7023550-0 (Version None)
Quarter: 2010Q3

REPORT INFORMATION
  Report Type: 
  Country: None (occurrence: None)
  Receive Date: 20100930
  Receipt Date: 20100930
  Transmission Date: 20110219
  Serious: Yes (Other)
  Sender: FDA-Public Use
  Company Number: None

PATIENT
  Sex: Female

DRUGS (1)
  1. TERBINAFINE HYDROCHLORIDE [Suspect]
     Dosage: 250 MG TAB 1 TAB QDAY PO
     Route: 048
     Dates: start: 20100718, end: 20100913

REACTIONS (1)
  - AGEUSIA [None]
